FAERS Safety Report 5896059-5 (Version None)
Quarter: 2008Q3

REPORT INFORMATION
  Report Type: 
  Country: None (occurrence: None)
  Receive Date: 20080924
  Receipt Date: 20080911
  Transmission Date: 20090109
  Serious: Yes (Other)
  Sender: FDA-Public Use
  Company Number: US-ELI_LILLY_AND_COMPANY-US200809002671

PATIENT
  Sex: Female

DRUGS (3)
  1. EVISTA [Suspect]
     Indication: BONE DENSITY DECREASED
     Dosage: UNK, UNKNOWN
     Route: 065
     Dates: start: 20050501
  2. CALCIUM W/VITAMIN D NOS [Concomitant]
     Dosage: UNK, 2/D
     Route: 065
  3. VITAMIN TAB [Concomitant]
     Dosage: UNK, UNKNOWN
     Route: 065

REACTIONS (6)
  - ARTHRALGIA [None]
  - BENIGN BREAST NEOPLASM [None]
  - BREAST MASS [None]
  - BREAST PAIN [None]
  - MUSCLE SPASMS [None]
  - VITAMIN D DECREASED [None]
